FAERS Safety Report 6696644-7 (Version None)
Quarter: 2010Q2

REPORT INFORMATION
  Report Type: 
  Country: None (occurrence: None)
  Receive Date: 20100426
  Receipt Date: 20100412
  Transmission Date: 20101027
  Serious: Yes (Other)
  Sender: FDA-Public Use
  Company Number: US-BAYER-201016762NA

PATIENT
  Age: 63 Year
  Sex: Male

DRUGS (21)
  1. LEVITRA [Suspect]
     Indication: ERECTILE DYSFUNCTION
     Route: 048
  2. LEVITRA [Suspect]
     Route: 048
     Dates: start: 20100214
  3. LEVITRA [Suspect]
     Route: 048
     Dates: start: 20100220
  4. LEVITRA [Suspect]
     Route: 048
     Dates: start: 20100123
  5. COREG [Concomitant]
     Dosage: AS USED: 12.5 MG  UNIT DOSE: 12.5 MG
     Dates: start: 20090505
  6. SYNTHROID [Concomitant]
     Dosage: TOTAL DAILY DOSE: 137 ?G  UNIT DOSE: 137 ?G
     Dates: start: 20091120
  7. PRILOSEC [Concomitant]
     Dosage: TOTAL DAILY DOSE: 20 MG  UNIT DOSE: 20 MG
  8. SIMVASTATIN [Concomitant]
     Dosage: TOTAL DAILY DOSE: 80 MG  UNIT DOSE: 80 MG
  9. LOTENSIN [Concomitant]
     Dosage: TOTAL DAILY DOSE: 10 MG  UNIT DOSE: 10 MG
  10. ALLOPURINOL [Concomitant]
     Dosage: TOTAL DAILY DOSE: 150 MG  UNIT DOSE: 150 MG
     Dates: start: 20090824
  11. VITAMIN D [Concomitant]
     Dosage: 50.000 UNITS
  12. COUMADIN [Concomitant]
     Dosage: TOTAL DAILY DOSE: 5 MG  UNIT DOSE: 5 MG
  13. FLONASE [Concomitant]
  14. ZEMPLAR [Concomitant]
     Dosage: AS USED: 1 ?G  UNIT DOSE: 1 ?G
     Dates: start: 20090805
  15. SODIUM BICARBONATE [Concomitant]
     Dosage: TOTAL DAILY DOSE: 2.600 MG  UNIT DOSE: 1.3 MG
  16. ASPIRIN [Concomitant]
     Dosage: TOTAL DAILY DOSE: 81 MG  UNIT DOSE: 81 MG
  17. DOCUSATE SODIUM [Concomitant]
     Dosage: TOTAL DAILY DOSE: 200 MG  UNIT DOSE: 100 MG
  18. BIOTIN [Concomitant]
     Dosage: TOTAL DAILY DOSE: 1.000 ?G  UNIT DOSE: 1 ?G
  19. GLUCOSAMINE [Concomitant]
     Dosage: TOTAL DAILY DOSE: 1.500 MG  UNIT DOSE: 1.5 MG
  20. CHONDROITIN [Concomitant]
     Dosage: TOTAL DAILY DOSE: 1.200 MG  UNIT DOSE: 1.2 MG
  21. TYLENOL-500 [Concomitant]

REACTIONS (1)
  - CONJUNCTIVAL HAEMORRHAGE [None]
